FAERS Safety Report 9124515 (Version 2)
Quarter: 2014Q1

REPORT INFORMATION
  Report Type: Report from Study
  Country: BD (occurrence: BD)
  Receive Date: 20130116
  Receipt Date: 20140128
  Transmission Date: 20141002
  Serious: Yes (Death, Hospitalization)
  Sender: FDA-Public Use
  Company Number: PHHY2013BD003727

PATIENT
  Age: 80 Year
  Sex: Female

DRUGS (2)
  1. ACLASTA [Suspect]
     Indication: OSTEOPOROSIS
     Dosage: ONCE YEARLY
     Route: 042
     Dates: start: 20080727
  2. ACLASTA [Suspect]
     Dosage: ONCE YEARLY
     Route: 042

REACTIONS (2)
  - Oedema peripheral [Fatal]
  - Pulmonary oedema [Unknown]
